FAERS Safety Report 11810107 (Version 1)
Quarter: 2015Q4

REPORT INFORMATION
  Report Type: Spontaneous
  Country: IN (occurrence: IN)
  Receive Date: 20151208
  Receipt Date: 20151208
  Transmission Date: 20160305
  Serious: Yes (Hospitalization)
  Sender: FDA-Public Use
  Company Number: IN-WATSON-2015-26725

PATIENT
  Age: 12 Year
  Sex: Male

DRUGS (1)
  1. HALOPERIDOL (UNKNOWN) [Suspect]
     Active Substance: HALOPERIDOL
     Indication: TIC
     Dosage: 5 DROPS OF 2 MG/ML ORAL SOLUTION
     Route: 048

REACTIONS (1)
  - Tourette^s disorder [Recovering/Resolving]
